FAERS Safety Report 20586282 (Version 1)
Quarter: 2022Q1

REPORT INFORMATION
  Report Type: Spontaneous
  Country: US (occurrence: US)
  Receive Date: 20220313
  Receipt Date: 20220313
  Transmission Date: 20220423
  Serious: Yes (Hospitalization, Other)
  Sender: FDA-Public Use
  Company Number: US-TEVA-2022-US-2014916

PATIENT
  Age: 72 Year
  Sex: Female

DRUGS (2)
  1. ALLOPURINOL [Suspect]
     Active Substance: ALLOPURINOL
     Indication: Renal disorder
     Dosage: 100 MILLIGRAM DAILY; DAILY
     Route: 065
     Dates: start: 2015, end: 2020
  2. ALLOPURINOL [Suspect]
     Active Substance: ALLOPURINOL
     Dosage: ONE EVERY OTHER DAY
     Route: 065
     Dates: start: 2020

REACTIONS (10)
  - Platelet count decreased [Recovered/Resolved with Sequelae]
  - Arteriovenous fistula aneurysm [Unknown]
  - Haemorrhage [Not Recovered/Not Resolved]
  - Central venous catheterisation [Recovered/Resolved with Sequelae]
  - Arteriovenous fistula thrombosis [Unknown]
  - Dialysis [Unknown]
  - Neuropathy peripheral [Not Recovered/Not Resolved]
  - Fistula [Unknown]
  - Infection [Not Recovered/Not Resolved]
  - Inappropriate schedule of product administration [Unknown]

NARRATIVE: CASE EVENT DATE: 20200101
